FAERS Safety Report 5010677-8 (Version None)
Quarter: 2006Q2

REPORT INFORMATION
  Report Type: 
  Country: None (occurrence: None)
  Receive Date: 20060516
  Receipt Date: 20060501
  Transmission Date: 20061013
  Serious: Yes (Other)
  Sender: FDA-Public Use
  Company Number: 2006BH009044

PATIENT
  Age: 57 Year
  Sex: Male

DRUGS (1)
  1. IMMUNE GLOBULIN INTRAVENOUS (HUMAN) [Suspect]
     Indication: POLYNEUROPATHY
     Dosage: 0.6 GM;EVERY 4 WK;IV X 31 TREATMENTS
     Route: 042

REACTIONS (2)
  - BLOOD PRESSURE SYSTOLIC INCREASED [None]
  - TRANSIENT ISCHAEMIC ATTACK [None]
